FAERS Safety Report 24369983 (Version 3)
Quarter: 2025Q2

REPORT INFORMATION
  Report Type: Spontaneous
  Country: ES (occurrence: ES)
  Receive Date: 20240927
  Receipt Date: 20250425
  Transmission Date: 20250716
  Serious: Yes (Other)
  Sender: CELLTRION
  Company Number: ES-BIOCON BIOLOGICS LIMITED-BBL2024001927

PATIENT

DRUGS (5)
  1. BEVACIZUMAB [Suspect]
     Active Substance: BEVACIZUMAB
     Indication: Hereditary haemorrhagic telangiectasia
     Route: 042
     Dates: start: 202202
  2. BEVACIZUMAB [Suspect]
     Active Substance: BEVACIZUMAB
     Dosage: 5 MILLIGRAM/KILOGRAM, Q2W
     Route: 042
  3. BEVACIZUMAB [Suspect]
     Active Substance: BEVACIZUMAB
     Dosage: 5 MILLIGRAM/KILOGRAM, Q2W MAINTENANCE
     Route: 042
  4. BEVACIZUMAB [Suspect]
     Active Substance: BEVACIZUMAB
     Dosage: 5 MILLIGRAM/KILOGRAM, 4-12 WEEKS
     Route: 042
  5. IRON [Concomitant]
     Active Substance: IRON
     Dosage: UNK, MONTHLY
     Route: 042

REACTIONS (5)
  - Proteinuria [Unknown]
  - Hypertension [Unknown]
  - Renal failure [Unknown]
  - Drug effective for unapproved indication [Unknown]
  - Off label use [Unknown]
